FAERS Safety Report 7429173-3 (Version None)
Quarter: 2011Q2

REPORT INFORMATION
  Report Type: 
  Country: None (occurrence: None)
  Receive Date: 20110421
  Receipt Date: 20110412
  Transmission Date: 20111010
  Serious: Yes (Hospitalization)
  Sender: FDA-Public Use
  Company Number: FR-ROCHE-766915

PATIENT
  Sex: Male

DRUGS (14)
  1. HOLOXAN [Suspect]
     Route: 065
     Dates: end: 20101101
  2. ACTINOMYCIN D [Suspect]
     Dosage: THIRD COURSE
     Route: 065
     Dates: start: 20101215
  3. AVASTIN [Suspect]
     Route: 065
     Dates: end: 20101101
  4. ACTINOMYCIN D [Suspect]
     Route: 065
  5. ACTINOMYCIN D [Suspect]
     Route: 065
     Dates: end: 20101101
  6. ADRIAMYCIN PFS [Suspect]
     Route: 065
  7. AVASTIN [Suspect]
     Dosage: THIRD COURSE
     Route: 065
     Dates: start: 20101215
  8. ONCOVIN [Suspect]
     Route: 065
     Dates: end: 20101101
  9. ADRIAMYCIN PFS [Suspect]
     Dosage: SECOND COURSE
     Route: 065
  10. ADRIAMYCIN PFS [Suspect]
     Route: 065
  11. AVASTIN [Suspect]
     Dosage: SECOND COURSE
     Route: 065
     Dates: start: 20101125
  12. ONCOVIN [Suspect]
     Dosage: SECOND COURSE DAY 8
     Route: 065
     Dates: start: 20101210
  13. ONCOVIN [Suspect]
     Dosage: THIRD COURSE
     Route: 065
     Dates: start: 20101215
  14. HOLOXAN [Suspect]
     Dosage: SECOND COURSE
     Route: 065
     Dates: start: 20101125

REACTIONS (1)
  - PANCREATITIS [None]
